FAERS Safety Report 6082596-X (Version None)
Quarter: 2009Q1

REPORT INFORMATION
  Report Type: 
  Country: None (occurrence: None)
  Receive Date: 20090204
  Receipt Date: 20080507
  Transmission Date: 20090719
  Serious: Yes (Life-Threatening, Other)
  Sender: FDA-Public Use
  Company Number: 272935

PATIENT
  Age: 65 Year
  Sex: Male
  Weight: 104.3 kg

DRUGS (13)
  1. NOVOLIN 70/30 [Suspect]
     Indication: INSULIN-REQUIRING TYPE 2 DIABETES MELLITUS
     Dosage: 25 IU, QD, SUBCUTANEOUS; 30 LU, BID, SUBCUTANEOUS
     Route: 058
     Dates: start: 19860101, end: 20080201
  2. NOVOLIN 70/30 [Suspect]
     Indication: INSULIN-REQUIRING TYPE 2 DIABETES MELLITUS
     Dosage: 25 IU, QD, SUBCUTANEOUS; 30 LU, BID, SUBCUTANEOUS
     Route: 058
     Dates: start: 20080201
  3. NOVOLOG MIX 70/30 [Suspect]
     Indication: INSULIN-REQUIRING TYPE 2 DIABETES MELLITUS
     Dosage: 30 IU, BID, SUBCUTANEOUS
     Route: 058
     Dates: start: 20080301, end: 20080305
  4. FUROSEMIDE [Concomitant]
  5. CITALOPRAM HYDROBROMIDE [Concomitant]
  6. ROSIGLITAZONE [Concomitant]
  7. DIOVAN [Concomitant]
  8. HYDRALAZINE HCL [Concomitant]
  9. ISOSORBIDE (ISOSORBIDE DINITRATE) [Concomitant]
  10. PANTOPRAZOLE SODIUM [Concomitant]
  11. METOPROLOL TARTRATE [Concomitant]
  12. BUMETANIDE [Concomitant]
  13. GLIMEPIRIDE [Concomitant]

REACTIONS (2)
  - HYPOGLYCAEMIC UNCONSCIOUSNESS [None]
  - WRONG DRUG ADMINISTERED [None]
